FAERS Safety Report 17133933 (Version 1)
Quarter: 2019Q4

REPORT INFORMATION
  Report Type: Spontaneous
  Country: US (occurrence: US)
  Receive Date: 20191210
  Receipt Date: 20191210
  Transmission Date: 20200122
  Serious: No
  Sender: FDA-Public Use
  Company Number: US-UCBSA-2016039793

PATIENT
  Sex: Female

DRUGS (2)
  1. CIMZIA [Suspect]
     Active Substance: CERTOLIZUMAB PEGOL
     Indication: NEPHRITIC SYNDROME
     Dosage: 400 MG, MONTHLY (QM)
     Route: 058
     Dates: start: 20160121
  2. CIMZIA [Suspect]
     Active Substance: CERTOLIZUMAB PEGOL
     Indication: OFF LABEL USE

REACTIONS (2)
  - Ulcer [Unknown]
  - Off label use [Unknown]

NARRATIVE: CASE EVENT DATE: 2016
